FAERS Safety Report 10044700 (Version 2)
Quarter: 2014Q2

REPORT INFORMATION
  Report Type: Spontaneous
  Country: SZ (occurrence: None)
  Receive Date: 20140326
  Receipt Date: 20140414
  Transmission Date: 20141212
  Serious: Yes (Other)
  Sender: FDA-Public Use
  Company Number: 20140137

PATIENT
  Age: 30 Year
  Sex: Female
  Weight: 58 kg

DRUGS (1)
  1. FERINJECT [Suspect]
     Indication: IRON DEFICIENCY
     Dosage: IN 100 ML
     Route: 041
     Dates: start: 20130514, end: 20130514

REACTIONS (2)
  - Infusion related reaction [None]
  - Hypersensitivity [None]
